FAERS Safety Report 14982006 (Version 1)
Quarter: 2018Q2

REPORT INFORMATION
  Report Type: Spontaneous
  Country: US (occurrence: US)
  Receive Date: 20180607
  Receipt Date: 20180607
  Transmission Date: 20180711
  Serious: No
  Sender: FDA-Public Use
  Company Number: US-JNJFOC-20180528546

PATIENT
  Sex: Female

DRUGS (6)
  1. TOPAMAX [Suspect]
     Active Substance: TOPIRAMATE
     Indication: BIPOLAR DISORDER
     Route: 048
  2. PRAZOSIN. [Concomitant]
     Active Substance: PRAZOSIN
     Dosage: EVENING
     Route: 065
  3. SERTRALINE [Concomitant]
     Active Substance: SERTRALINE HYDROCHLORIDE
     Indication: AFFECTIVE DISORDER
     Route: 065
     Dates: start: 20180104
  4. QUETIAPINE. [Concomitant]
     Active Substance: QUETIAPINE
     Route: 065
  5. ALPRAZOLAM. [Concomitant]
     Active Substance: ALPRAZOLAM
     Indication: ANXIETY
     Route: 065
  6. ZIPRASIDONE. [Concomitant]
     Active Substance: ZIPRASIDONE
     Indication: AFFECTIVE DISORDER
     Route: 065

REACTIONS (3)
  - Weight decreased [Unknown]
  - Off label use [Unknown]
  - Product use in unapproved indication [Unknown]
